FAERS Safety Report 26044574 (Version 1)
Quarter: 2025Q4

REPORT INFORMATION
  Report Type: Spontaneous
  Country: JP (occurrence: JP)
  Receive Date: 20251114
  Receipt Date: 20251114
  Transmission Date: 20260117
  Serious: Yes (Death, Other)
  Sender: VERICEL
  Company Number: JP-VCEL-25-000377

PATIENT
  Age: 54 Year
  Sex: Male
  Weight: 79.5 kg

DRUGS (3)
  1. BROMELAINS [Suspect]
     Active Substance: BROMELAINS
     Indication: Burns second degree
     Dosage: 10 GRAM, SINGLE
     Route: 061
     Dates: start: 20250909, end: 20250909
  2. BROMELAINS [Suspect]
     Active Substance: BROMELAINS
     Indication: Burns third degree
  3. PETROLATUM [Concomitant]
     Active Substance: PETROLATUM
     Indication: Thermal burn
     Dosage: UNK
     Route: 061
     Dates: end: 20250909

REACTIONS (1)
  - Septic shock [Fatal]

NARRATIVE: CASE EVENT DATE: 20250914
